FAERS Safety Report 5352549-5 (Version None)
Quarter: 2007Q2

REPORT INFORMATION
  Report Type: 
  Country: None (occurrence: None)
  Receive Date: 20070611
  Receipt Date: 20070531
  Transmission Date: 20071010
  Serious: Yes (Other)
  Sender: FDA-Public Use
  Company Number: AU-ROCHE-459083

PATIENT
  Age: 68 Year
  Sex: Male
  Weight: 75 kg

DRUGS (8)
  1. CAPECITABINE [Suspect]
     Dosage: GIVEN ON DAYS 1-14 EVERY 3-WEEK-CYCLE AS PER PROTOCOL.
     Route: 048
     Dates: start: 20050927
  2. CAPECITABINE [Suspect]
     Dosage: GIVEN ON DAYS 1-14 EVERY 3-WEEK-CYCLE.
     Route: 048
     Dates: start: 20051115
  3. CAPECITABINE [Suspect]
     Dosage: GIVEN ON DAYS 1-14 EVERY 3-WEEK-CYCLE.
     Route: 048
     Dates: start: 20060221, end: 20060222
  4. BEVACIZUMAB [Suspect]
     Route: 042
     Dates: start: 20050927
  5. BEVACIZUMAB [Suspect]
     Route: 042
     Dates: start: 20051206
  6. BEVACIZUMAB [Suspect]
     Route: 042
     Dates: start: 20060221, end: 20060517
  7. MITOMYCIN-C BULK POWDER [Suspect]
     Route: 042
     Dates: start: 20050927, end: 20060221
  8. ACETYLSALICYLIC ACID SRT [Concomitant]
     Route: 048
     Dates: start: 20050928

REACTIONS (1)
  - PROTEINURIA [None]
